FAERS Safety Report 10194116 (Version 1)
Quarter: 2014Q2

REPORT INFORMATION
  Report Type: Spontaneous
  Country: US (occurrence: US)
  Receive Date: 20140524
  Receipt Date: 20140524
  Transmission Date: 20141212
  Serious: No
  Sender: FDA-Public Use
  Company Number: US-SANOFI-AVENTIS-2013SA066487

PATIENT
  Age: 76 Year
  Sex: Male

DRUGS (2)
  1. LANTUS SOLOSTAR [Suspect]
     Indication: LATENT AUTOIMMUNE DIABETES IN ADULTS
     Dosage: DOSE:10 UNIT(S)
     Route: 065
     Dates: start: 2007
  2. SOLOSTAR [Suspect]
     Indication: LATENT AUTOIMMUNE DIABETES IN ADULTS
     Dates: start: 2007

REACTIONS (2)
  - Skin disorder [Unknown]
  - Blood glucose increased [Unknown]
